FAERS Safety Report 9861709 (Version 1)
Quarter: 2014Q1

REPORT INFORMATION
  Report Type: Spontaneous
  Country: US (occurrence: None)
  Receive Date: 20140130
  Receipt Date: 20140130
  Transmission Date: 20141002
  Serious: Yes (Death)
  Sender: FDA-Public Use
  Company Number: 2014AP000710

PATIENT
  Age: 51 Year
  Sex: Female

DRUGS (9)
  1. DILTIAZEM [Suspect]
     Dosage: ; PO
     Route: 048
  2. TRAMADOL HYDROCHLORIDE TABLETS [Suspect]
     Dosage: ; PO
     Route: 048
  3. OXCARBAZEPINE TABLETS, 300 MG [Suspect]
     Dosage: ; PO
     Route: 048
  4. TRAZODONE [Suspect]
     Dosage: ; PO
     Route: 048
  5. TOPIRAMATE TABLETS [Suspect]
     Dosage: ; PO
     Route: 048
  6. GABAPENTIN TABLETS [Suspect]
     Dosage: ; PO
     Route: 048
  7. METOPROLOL [Suspect]
     Dosage: ; PO
     Route: 048
  8. BUPROPION HYDROCHLORIDE TABLETS [Suspect]
     Dosage: ; PO
     Route: 048
  9. DIPHENHYDRAMINE [Suspect]
     Dosage: ; PO
     Route: 048

REACTIONS (1)
  - Completed suicide [None]
